FAERS Safety Report 5726908-2 (Version None)
Quarter: 2008Q2

REPORT INFORMATION
  Report Type: 
  Country: None (occurrence: None)
  Receive Date: 20080502
  Receipt Date: 20080423
  Transmission Date: 20081010
  Serious: Yes (Death)
  Sender: FDA-Public Use
  Company Number: FR-PFIZER INC-2008036383

PATIENT
  Sex: Female

DRUGS (10)
  1. ZOLOFT [Suspect]
     Route: 048
  2. PREVISCAN [Suspect]
     Dosage: TEXT:EVERY DAY
     Route: 048
  3. ALLOPURINOL [Suspect]
     Route: 048
  4. CARDENSIEL [Suspect]
     Route: 048
  5. ELISOR [Suspect]
     Route: 048
  6. TRAMADOL HCL [Suspect]
  7. LASILIX [Suspect]
     Route: 048
  8. FORLAX [Suspect]
  9. NEXIUM [Suspect]
  10. SOLUPRED [Suspect]
     Route: 048

REACTIONS (2)
  - CEREBRAL HAEMORRHAGE [None]
  - SUBDURAL HAEMATOMA [None]
